FAERS Safety Report 9239549 (Version 1)
Quarter: 2013Q2

REPORT INFORMATION
  Report Type: Spontaneous
  Country: US (occurrence: US)
  Receive Date: 20130418
  Receipt Date: 20130418
  Transmission Date: 20140414
  Serious: Yes (Other)
  Sender: FDA-Public Use
  Company Number: US-SANOFI-AVENTIS-2012SA084894

PATIENT
  Age: 30 Year
  Sex: Female

DRUGS (1)
  1. LOVENOX [Suspect]
     Indication: FACTOR V LEIDEN MUTATION
     Route: 065
     Dates: start: 2012, end: 2012

REACTIONS (1)
  - Thrombosis [Unknown]
